FAERS Safety Report 5759835-5 (Version None)
Quarter: 2008Q2

REPORT INFORMATION
  Report Type: 
  Country: None (occurrence: None)
  Receive Date: 20080605
  Receipt Date: 20080528
  Transmission Date: 20081010
  Serious: Yes (Hospitalization)
  Sender: FDA-Public Use
  Company Number: PHBS2008JP04661

PATIENT
  Age: 75 Year
  Sex: Male

DRUGS (3)
  1. VALSARTAN [Suspect]
     Dosage: UNK, UNK
     Route: 065
  2. AMLODIPINE [Suspect]
     Dosage: UNK, UNK
     Route: 065
  3. CLONAZEPAM [Suspect]
     Indication: HICCUPS
     Dosage: 1 MG
     Route: 048

REACTIONS (6)
  - ASPIRATION [None]
  - HICCUPS [None]
  - LOSS OF CONSCIOUSNESS [None]
  - PNEUMONIA [None]
  - RESPIRATORY RATE INCREASED [None]
  - SEDATION [None]
